FAERS Safety Report 14764760 (Version 1)
Quarter: 2018Q2

REPORT INFORMATION
  Report Type: Spontaneous
  Country: US (occurrence: US)
  Receive Date: 20180416
  Receipt Date: 20180416
  Transmission Date: 20180711
  Serious: Yes (Other)
  Sender: FDA-Public Use
  Company Number: US-OTSUKA-2018_009097

PATIENT

DRUGS (6)
  1. MELPHALAN. [Suspect]
     Active Substance: MELPHALAN
     Indication: STEM CELL TRANSPLANT
     Dosage: 60 MG/M2, UNK (DAYS -3 AND -2)
     Route: 065
  2. GEMCITABINE [Suspect]
     Active Substance: GEMCITABINE\GEMCITABINE HYDROCHLORIDE
     Indication: STEM CELL TRANSPLANT
     Dosage: 75 MG/M2, UNK (DAYS -8 AND -3)
     Route: 065
  3. PHENYTOIN. [Concomitant]
     Active Substance: PHENYTOIN
     Indication: PRODUCT USED FOR UNKNOWN INDICATION
     Dosage: UNK (300 TO 600 MG/DAY FROM  FROM DAY-9 TO DAY -4)
     Route: 065
  4. DEXAMETHASONE. [Concomitant]
     Active Substance: DEXAMETHASONE
     Indication: PRODUCT USED FOR UNKNOWN INDICATION
     Dosage: 8 MG, BID (FROM DAY -9 TO DAY -2)
     Route: 042
  5. BUSULFEX [Suspect]
     Active Substance: BUSULFAN
     Indication: STEM CELL TRANSPLANT
     Dosage: 32 MG/M2, (-8 DAY TO -5)
     Route: 042
  6. GEMCITABINE [Suspect]
     Active Substance: GEMCITABINE\GEMCITABINE HYDROCHLORIDE
     Dosage: 2700 MG/M2, UNK (OVER 3 HOURS AT 10 MG/M2/MINUTE)
     Route: 065

REACTIONS (1)
  - Pneumonitis [Unknown]
